FAERS Safety Report 21625956 (Version 1)
Quarter: 2022Q4

REPORT INFORMATION
  Report Type: Report from Study
  Country: US (occurrence: US)
  Receive Date: 20221122
  Receipt Date: 20221122
  Transmission Date: 20230113
  Serious: No
  Sender: FDA-Public Use
  Company Number: US-ABBVIE-22K-163-4511526-00

PATIENT
  Sex: Female

DRUGS (2)
  1. SKYRIZI [Suspect]
     Active Substance: RISANKIZUMAB-RZAA
     Indication: Psoriasis
     Dosage: WEEK 0
     Route: 058
     Dates: start: 20220802
  2. SKYRIZI [Suspect]
     Active Substance: RISANKIZUMAB-RZAA
     Dosage: WEEK 4
     Route: 058
     Dates: start: 20220902

REACTIONS (11)
  - Burning sensation [Not Recovered/Not Resolved]
  - Ear infection [Recovering/Resolving]
  - Feeling hot [Recovering/Resolving]
  - Rash pruritic [Unknown]
  - Erythema [Unknown]
  - Inappropriate schedule of product administration [Unknown]
  - Pruritus [Unknown]
  - Pharyngitis [Recovering/Resolving]
  - Fatigue [Unknown]
  - Urticaria [Not Recovered/Not Resolved]
  - Gastric infection [Unknown]

NARRATIVE: CASE EVENT DATE: 20220101
